FAERS Safety Report 23874300 (Version 2)
Quarter: 2024Q2

REPORT INFORMATION
  Report Type: Spontaneous
  Country: FR (occurrence: FR)
  Receive Date: 20240520
  Receipt Date: 20240529
  Transmission Date: 20240716
  Serious: Yes (Other)
  Sender: FDA-Public Use
  Company Number: None

PATIENT
  Age: 68 Year
  Sex: Male

DRUGS (5)
  1. GEMCITABINE HYDROCHLORIDE [Suspect]
     Active Substance: GEMCITABINE HYDROCHLORIDE
     Indication: Cholangiocarcinoma
     Dosage: 2000 MG PER COURSE, 6 COURSES IN TOTAL
     Route: 042
     Dates: start: 20240229, end: 20240309
  2. GEMCITABINE HYDROCHLORIDE [Suspect]
     Active Substance: GEMCITABINE HYDROCHLORIDE
     Dosage: 1500 MG PER COURSE, 6 COURSES IN TOTAL
     Dates: start: 20240423, end: 20240502
  3. CISPLATIN [Suspect]
     Active Substance: CISPLATIN
     Indication: Cholangiocarcinoma
     Dosage: 50 MG PER COURSE, 6 COURSES IN TOTAL
     Dates: start: 20240229, end: 20240309
  4. CISPLATIN [Suspect]
     Active Substance: CISPLATIN
     Dosage: 40 MG PER COURSE, 3 COURSES IN TOTAL
     Route: 042
     Dates: start: 20240423, end: 20240425
  5. IMFINZI [Suspect]
     Active Substance: DURVALUMAB
     Indication: Cholangiocarcinoma
     Dosage: 1500 MG PER COURSE, 12 COURSES IN TOTAL
     Route: 042
     Dates: start: 20240229, end: 20240502

REACTIONS (6)
  - Oral fungal infection [Recovered/Resolved]
  - Thrombocytopenia [Recovered/Resolved]
  - Carbuncle [Recovered/Resolved]
  - Infected cyst [Recovered/Resolved]
  - Neutropenia [Recovered/Resolved]
  - Fungal oesophagitis [Recovered/Resolved]

NARRATIVE: CASE EVENT DATE: 20240401
